FAERS Safety Report 11803304 (Version 1)
Quarter: 2015Q4

REPORT INFORMATION
  Report Type: Spontaneous
  Country: US (occurrence: US)
  Receive Date: 20151204
  Receipt Date: 20151204
  Transmission Date: 20160305
  Serious: No
  Sender: FDA-Public Use
  Company Number: US-WARNER CHILCOTT, LLC-1045070

PATIENT
  Sex: Female

DRUGS (1)
  1. LO LOESTRIN FE [Suspect]
     Active Substance: ETHINYL ESTRADIOL\NORETHINDRONE ACETATE
     Route: 048
     Dates: start: 201506

REACTIONS (1)
  - Haemangioma of liver [Unknown]
